FAERS Safety Report 9804561 (Version 2)
Quarter: 2014Q3

REPORT INFORMATION
  Report Type: Spontaneous
  Country: US (occurrence: US)
  Receive Date: 20140108
  Receipt Date: 20140819
  Transmission Date: 20150326
  Serious: Yes (Death, Hospitalization)
  Sender: FDA-Public Use
  Company Number: US-BRISTOL-MYERS SQUIBB COMPANY-19969377

PATIENT
  Age: 71 Year
  Sex: Male
  Weight: 90.65 kg

DRUGS (19)
  1. LIPITOR [Concomitant]
     Active Substance: ATORVASTATIN CALCIUM
  2. MULTIVITAMIN [Concomitant]
     Active Substance: VITAMINS
  3. ZESTRIL [Concomitant]
     Active Substance: LISINOPRIL
  4. BYETTA [Suspect]
     Active Substance: EXENATIDE
     Dosage: LAST DOSE ON 16SEP05
     Dates: start: 20050826, end: 20050916
  5. COUMADIN [Concomitant]
     Active Substance: WARFARIN SODIUM
  6. METFORMIN HCL [Concomitant]
     Active Substance: METFORMIN HYDROCHLORIDE
  7. PRECOSE [Concomitant]
     Active Substance: ACARBOSE
  8. GLUCOPHAGE [Concomitant]
     Active Substance: METFORMIN HYDROCHLORIDE
  9. NITROSTAT [Concomitant]
     Active Substance: NITROGLYCERIN
  10. JANUVIA [Suspect]
     Active Substance: SITAGLIPTIN PHOSPHATE
     Dosage: LAST DOSE ON 1FEB03
     Route: 048
     Dates: start: 20081003, end: 20130201
  11. OCUVITE [Concomitant]
     Active Substance: VITAMINS
  12. LANTUS [Concomitant]
     Active Substance: INSULIN GLARGINE
  13. ASPIRIN. [Concomitant]
     Active Substance: ASPIRIN
  14. COREG [Concomitant]
     Active Substance: CARVEDILOL
  15. LASIX [Concomitant]
     Active Substance: FUROSEMIDE
  16. KENALOG [Concomitant]
     Active Substance: TRIAMCINOLONE ACETONIDE
  17. PRINIVIL [Concomitant]
     Active Substance: LISINOPRIL
  18. CENTRUM SILVER [Concomitant]
     Active Substance: VITAMINS
  19. IBUPROFEN. [Concomitant]
     Active Substance: IBUPROFEN

REACTIONS (1)
  - Pancreatic carcinoma [Fatal]

NARRATIVE: CASE EVENT DATE: 20121124
